FAERS Safety Report 12437080 (Version 1)
Quarter: 2016Q2

REPORT INFORMATION
  Report Type: Spontaneous
  Country: None (occurrence: None)
  Receive Date: 20160603
  Receipt Date: 20160603
  Transmission Date: 20160815
  Serious: Yes (Hospitalization)
  Sender: FDA-Public Use
  Company Number: None

PATIENT
  Age: 2 Year
  Sex: Female
  Weight: 14.2 kg

DRUGS (10)
  1. VINCRISTINE SULFATE. [Suspect]
     Active Substance: VINCRISTINE SULFATE
     Dates: end: 20160517
  2. ONCASPAR [Suspect]
     Active Substance: PEGASPARGASE
     Dates: end: 20160428
  3. METHOTREXATE [Suspect]
     Active Substance: METHOTREXATE
     Dates: end: 20160523
  4. DEXAMETHASONE. [Suspect]
     Active Substance: DEXAMETHASONE
     Dates: end: 20160523
  5. BACTRIM [Concomitant]
     Active Substance: SULFAMETHOXAZOLE\TRIMETHOPRIM
  6. CEFEPIME [Concomitant]
     Active Substance: CEFEPIME HYDROCHLORIDE
  7. METRONIDAZOLE. [Concomitant]
     Active Substance: METRONIDAZOLE
  8. CYTARABINE. [Suspect]
     Active Substance: CYTARABINE
     Dates: end: 20160425
  9. MEROPENEM. [Concomitant]
     Active Substance: MEROPENEM
  10. VANCOMYCIN [Concomitant]
     Active Substance: VANCOMYCIN

REACTIONS (9)
  - Respiratory distress [None]
  - Febrile neutropenia [None]
  - Constipation [None]
  - Post procedural haemorrhage [None]
  - Pulmonary oedema [None]
  - Ascites [None]
  - Clostridium difficile colitis [None]
  - Pseudomonal bacteraemia [None]
  - Haemoglobin decreased [None]

NARRATIVE: CASE EVENT DATE: 20160528
